FAERS Safety Report 5674732-1 (Version None)
Quarter: 2008Q1

REPORT INFORMATION
  Report Type: 
  Country: None (occurrence: None)
  Receive Date: 20080320
  Receipt Date: 20080313
  Transmission Date: 20080703
  Serious: Yes (Hospitalization)
  Sender: FDA-Public Use
  Company Number: GB-ROCHE-553654

PATIENT
  Age: 68 Year
  Sex: Female
  Weight: 118 kg

DRUGS (7)
  1. ORLISTAT [Suspect]
     Indication: OBESITY
     Route: 048
     Dates: start: 20080218
  2. AMITRIPTYLINE HCL [Concomitant]
     Indication: ANTIDEPRESSANT THERAPY
     Dosage: TAKEN AT NIGHT
     Route: 048
  3. CANDESARTAN CILEXETIL [Concomitant]
     Indication: HYPERTENSION
     Route: 048
  4. CODEINE SUL TAB [Concomitant]
     Indication: ANALGESIA
     Dosage: DAILY
     Route: 048
  5. LEVOTHYROXINE SODIUM [Concomitant]
     Route: 048
  6. PARACETAMOL [Concomitant]
     Indication: ANALGESIA
     Route: 048
  7. UNSPECIFIED DRUG [Concomitant]
     Indication: HIATUS HERNIA
     Dosage: DRUG WAS REPORTED AS ESCOMPASORIL.
     Route: 048

REACTIONS (1)
  - SYNOVIAL CYST [None]
